FAERS Safety Report 8247680-0 (Version None)
Quarter: 2012Q1

REPORT INFORMATION
  Report Type: 
  Country: None (occurrence: None)
  Receive Date: 20120330
  Receipt Date: 20120320
  Transmission Date: 20120608
  Serious: Yes (Other)
  Sender: FDA-Public Use
  Company Number: PHHY2012FR020554

PATIENT
  Sex: Male
  Weight: 70 kg

DRUGS (6)
  1. PROPRANOLOL [Concomitant]
     Indication: HYPERTENSION
     Dosage: 1 DF, UNK
     Dates: start: 20110101
  2. LERCANIDIPINE [Concomitant]
     Indication: HYPERTENSION
     Dosage: 1 DF, UNK
     Dates: start: 20110101
  3. RASILEZ [Suspect]
     Dosage: 150 MG, QD
  4. RASILEZ [Suspect]
     Dosage: 75 MG, QD (HALF TABLET OF RASILEZ  150 MG)
  5. ALFUZOSIN HCL [Concomitant]
     Dosage: 1 DF, DAILY
  6. RASILEZ [Suspect]
     Indication: HYPERTENSION
     Dosage: 300 MG 1 DF, QD
     Route: 048
     Dates: start: 20120101, end: 20120201

REACTIONS (17)
  - LARYNGOSPASM [None]
  - RESPIRATORY DISTRESS [None]
  - STRIDOR [None]
  - HYPOTENSION [None]
  - DIZZINESS [None]
  - HEART RATE INCREASED [None]
  - ANXIETY [None]
  - PRURITUS [None]
  - WRONG TECHNIQUE IN DRUG USAGE PROCESS [None]
  - BRONCHOSPASM [None]
  - WHEEZING [None]
  - DYSPHAGIA [None]
  - ANGIOEDEMA [None]
  - CYANOSIS [None]
  - COUGH [None]
  - ASPHYXIA [None]
  - DYSPNOEA [None]
